FAERS Safety Report 4344904-7 (Version None)
Quarter: 2004Q2

REPORT INFORMATION
  Report Type: 
  Country: None (occurrence: None)
  Receive Date: 20040420
  Receipt Date: 20040408
  Transmission Date: 20050107
  Serious: Yes (Hospitalization)
  Sender: FDA-Public Use
  Company Number: 04P-056-0250915-00

PATIENT
  Age: 41 Year
  Sex: Male

DRUGS (25)
  1. NORVIR [Suspect]
     Indication: HIV INFECTION
     Dosage: 100 MG, 1 IN 1 D, PER ORAL
     Route: 048
     Dates: start: 20040105, end: 20040209
  2. LAMIVUDINE [Concomitant]
  3. VIREAD [Concomitant]
  4. FUZEON [Concomitant]
  5. COTRIMOXAZOLE [Concomitant]
  6. OXYCODONE HCL [Concomitant]
  7. ASPIRIN [Concomitant]
  8. CLONAZEPAM [Concomitant]
  9. DAPSONE [Concomitant]
  10. FOLIC ACID [Concomitant]
  11. TOCOPHERYL  ACETATE [Concomitant]
  12. LAMIVUDINE [Concomitant]
  13. TENOFOVIR [Concomitant]
  14. ENFUVIRTIDE [Concomitant]
  15. MORPHINE SULFATE [Concomitant]
  16. CLOMIPRAMINE HCL [Concomitant]
  17. CACIT [Concomitant]
  18. POTASSIUM CHLORIDE [Concomitant]
  19. NICARDIPINE HCL [Concomitant]
  20. PERINDOPRIL [Concomitant]
  21. PREDNISONE [Concomitant]
  22. CLONAZEPAM [Concomitant]
  23. CITALOPRAM HYDROBROMIDE [Concomitant]
  24. MORPHINE SULFATE [Concomitant]
  25. VALACYCLOVIR HCL [Concomitant]

REACTIONS (24)
  - ASTHENIA [None]
  - BLOOD PRESSURE INCREASED [None]
  - BODY TEMPERATURE INCREASED [None]
  - CARDIAC FAILURE [None]
  - CHEST PAIN [None]
  - COUGH [None]
  - CREPITATIONS [None]
  - CRYOGLOBULINAEMIA [None]
  - DILATATION VENTRICULAR [None]
  - DYSPNOEA [None]
  - EJECTION FRACTION DECREASED [None]
  - GALLOP RHYTHM PRESENT [None]
  - HAEMOPTYSIS [None]
  - HEPATOJUGULAR REFLUX [None]
  - HEPATOMEGALY [None]
  - MYOCARDITIS [None]
  - ORTHOPNOEA [None]
  - OXYGEN SATURATION DECREASED [None]
  - PALPITATIONS [None]
  - PLEURAL EFFUSION [None]
  - PULMONARY CONGESTION [None]
  - PULMONARY OEDEMA [None]
  - TACHYCARDIA [None]
  - VENTRICULAR HYPOKINESIA [None]
